FAERS Safety Report 7589256-4 (Version None)
Quarter: 2011Q2

REPORT INFORMATION
  Report Type: 
  Country: None (occurrence: None)
  Receive Date: 20110627
  Receipt Date: 20110613
  Transmission Date: 20111010
  Serious: Yes (Hospitalization, Other)
  Sender: FDA-Public Use
  Company Number: UCT-007859

PATIENT
  Age: 57 Year
  Sex: Male
  Weight: 96.8 kg

DRUGS (6)
  1. METOPROLOL TARTRATE [Suspect]
     Dosage: 50 MG (25 MG, 2 IN 1 D)
  2. REMODULIN [Suspect]
     Indication: COR PULMONALE CHRONIC
     Dosage: SEE IMAGE
     Route: 058
     Dates: start: 20110512
  3. REMODULIN [Suspect]
     Indication: PAIN
     Dosage: SEE IMAGE
     Route: 058
     Dates: start: 20110512
  4. REMODULIN [Suspect]
     Indication: COR PULMONALE CHRONIC
     Dosage: SEE IMAGE
     Route: 058
     Dates: start: 20110510
  5. REMODULIN [Suspect]
     Indication: PAIN
     Dosage: SEE IMAGE
     Route: 058
     Dates: start: 20110510
  6. REVATIO [Suspect]

REACTIONS (7)
  - PLATELET COUNT DECREASED [None]
  - ANORECTAL DISCOMFORT [None]
  - FATIGUE [None]
  - HYPOTENSION [None]
  - DIARRHOEA [None]
  - HAEMATOCHEZIA [None]
  - PAIN IN EXTREMITY [None]
